FAERS Safety Report 15230895 (Version 1)
Quarter: 2018Q3

REPORT INFORMATION
  Report Type: Spontaneous
  Country: US (occurrence: US)
  Receive Date: 20180707
  Receipt Date: 20180707
  Transmission Date: 20181010
  Serious: No
  Sender: FDA-Public Use
  Company Number: None

PATIENT
  Age: 21 Year
  Sex: Female
  Weight: 117 kg

DRUGS (1)
  1. PREDNISONE. [Suspect]
     Active Substance: PREDNISONE
     Indication: RASH
     Dosage: ?          QUANTITY:5 TABLET(S);?
     Route: 048
     Dates: start: 20180704, end: 20180707

REACTIONS (1)
  - Chest pain [None]

NARRATIVE: CASE EVENT DATE: 20180707
